FAERS Safety Report 4650838-0 (Version None)
Quarter: 2005Q2

REPORT INFORMATION
  Report Type: 
  Country: None (occurrence: None)
  Receive Date: 20050503
  Receipt Date: 20050421
  Transmission Date: 20051028
  Serious: Yes (Life-Threatening, Hospitalization, Disabling, Other)
  Sender: FDA-Public Use
  Company Number: GB-BRISTOL-MYERS SQUIBB COMPANY-12942249

PATIENT
  Sex: Male

DRUGS (2)
  1. ABILIFY [Suspect]
     Route: 048
     Dates: start: 20040101
  2. METFORMIN HCL [Concomitant]
     Indication: DIABETES MELLITUS
     Dates: start: 20040401

REACTIONS (2)
  - CAROTID ARTERY DISSECTION [None]
  - CEREBELLAR INFARCTION [None]
